FAERS Safety Report 8983950 (Version 1)
Quarter: 2012Q4

REPORT INFORMATION
  Report Type: Spontaneous
  Country: US (occurrence: None)
  Receive Date: 20121218
  Receipt Date: 20121218
  Transmission Date: 20130627
  Serious: Yes (Other)
  Sender: FDA-Public Use
  Company Number: None

PATIENT
  Age: 32 Year
  Sex: Male
  Weight: 90.4 kg

DRUGS (1)
  1. IVACAFTOR [Suspect]
     Indication: CYSTIC FIBROSIS
     Dates: start: 20120827, end: 20120831

REACTIONS (5)
  - Abdominal pain [None]
  - Back pain [None]
  - Fatigue [None]
  - Oropharyngeal pain [None]
  - Blood creatinine increased [None]
